FAERS Safety Report 5413721-9 (Version None)
Quarter: 2007Q3

REPORT INFORMATION
  Report Type: 
  Country: None (occurrence: None)
  Receive Date: 20070814
  Receipt Date: 20070813
  Transmission Date: 20080115
  Serious: Yes (Other)
  Sender: FDA-Public Use
  Company Number: D0053678A

PATIENT
  Age: 74 Year
  Sex: Male
  Weight: 112 kg

DRUGS (2)
  1. AVANDAMET [Suspect]
     Dosage: 1002MG TWICE PER DAY
     Route: 048
     Dates: start: 20070227
  2. METFORMIN HCL [Concomitant]
     Dosage: 1000MG TWICE PER DAY
     Route: 065
     Dates: start: 20061101

REACTIONS (5)
  - ANAEMIA [None]
  - HEPATIC ENZYME INCREASED [None]
  - LIPIDS INCREASED [None]
  - LYMPHADENOPATHY [None]
  - MONOCYTE COUNT INCREASED [None]
